FAERS Safety Report 25277917 (Version 1)
Quarter: 2025Q2

REPORT INFORMATION
  Report Type: Spontaneous
  Country: US (occurrence: US)
  Receive Date: 20250507
  Receipt Date: 20250507
  Transmission Date: 20250716
  Serious: No
  Sender: MERCK SHARP & DOHME LLC
  Company Number: US-009507513-2282512

PATIENT
  Sex: Female

DRUGS (7)
  1. PEMBROLIZUMAB [Suspect]
     Active Substance: PEMBROLIZUMAB
     Indication: Renal cancer
     Route: 042
     Dates: start: 202312
  2. axitinib, [Concomitant]
  3. VITAMINS [Concomitant]
     Active Substance: VITAMINS
  4. HYDROCORTISONE [Concomitant]
     Active Substance: HYDROCORTISONE
  5. PRAVASTATIN [Concomitant]
     Active Substance: PRAVASTATIN
  6. RALOXIFENE [Concomitant]
     Active Substance: RALOXIFENE
  7. VITAMIN D [Concomitant]
     Active Substance: VITAMIN D NOS

REACTIONS (13)
  - Diarrhoea [Not Recovered/Not Resolved]
  - Limb injury [Not Recovered/Not Resolved]
  - Alopecia [Not Recovered/Not Resolved]
  - Brain fog [Not Recovered/Not Resolved]
  - Weight decreased [Not Recovered/Not Resolved]
  - Limb injury [Not Recovered/Not Resolved]
  - Fatigue [Not Recovered/Not Resolved]
  - Stomatitis [Not Recovered/Not Resolved]
  - Dry mouth [Not Recovered/Not Resolved]
  - Myalgia [Not Recovered/Not Resolved]
  - Dizziness [Not Recovered/Not Resolved]
  - Gingival recession [Not Recovered/Not Resolved]
  - Diplopia [Not Recovered/Not Resolved]
